FAERS Safety Report 9860443 (Version 1)
Quarter: 2014Q1

REPORT INFORMATION
  Report Type: Spontaneous
  Country: US (occurrence: US)
  Receive Date: 20140202
  Receipt Date: 20140202
  Transmission Date: 20141002
  Serious: Yes (Death, Other)
  Sender: FDA-Public Use
  Company Number: CHPA2014US001831

PATIENT
  Age: 32 Year
  Sex: Male

DRUGS (5)
  1. DEXTROMETHORPHAN HYDROBROMIDE [Suspect]
     Dosage: UNK
     Route: 065
  2. COCAINE [Suspect]
     Dosage: UNK
     Route: 065
  3. HEROIN [Suspect]
     Dosage: UNK
     Route: 065
  4. LEVAMISOLE [Suspect]
     Dosage: UNK
     Route: 065
  5. CODEINE [Suspect]
     Dosage: UNK
     Route: 065

REACTIONS (2)
  - Intentional drug misuse [Fatal]
  - Cardio-respiratory arrest [Unknown]
